FAERS Safety Report 18395565 (Version 1)
Quarter: 2020Q4

REPORT INFORMATION
  Report Type: Report from Study
  Country: US (occurrence: US)
  Receive Date: 20201017
  Receipt Date: 20201017
  Transmission Date: 20210114
  Serious: No
  Sender: FDA-Public Use
  Company Number: NVSC2020US276896

PATIENT
  Age: 49 Year
  Sex: Female

DRUGS (1)
  1. KESIMPTA [Suspect]
     Active Substance: OFATUMUMAB
     Indication: SECONDARY PROGRESSIVE MULTIPLE SCLEROSIS
     Dosage: 20 MG (BENEATH THE SKIN,USUALLY VIA INJECTION)
     Route: 058
     Dates: start: 20200929

REACTIONS (1)
  - Pain [Unknown]

NARRATIVE: CASE EVENT DATE: 20201003
